FAERS Safety Report 25010229 (Version 3)
Quarter: 2025Q1

REPORT INFORMATION
  Report Type: Report from Study
  Country: US (occurrence: US)
  Receive Date: 20250225
  Receipt Date: 20250318
  Transmission Date: 20250409
  Serious: Yes (Death, Hospitalization, Other)
  Sender: BAYER HEALTHCARE PHARMACEUTICALS INC.
  Company Number: US-BAYER-2025A022465

PATIENT
  Age: 72 Year
  Sex: Male

DRUGS (1)
  1. STIVARGA [Suspect]
     Active Substance: REGORAFENIB MONOHYDRATE
     Indication: Gastrointestinal stromal tumour
     Dosage: 160 MG, QD
     Route: 048
     Dates: start: 20250206, end: 20250222

REACTIONS (8)
  - Cerebrovascular accident [Fatal]
  - Chills [Unknown]
  - Haematological infection [Unknown]
  - Pyrexia [Unknown]
  - Cough [Unknown]
  - Haematemesis [Unknown]
  - Nausea [Not Recovered/Not Resolved]
  - Vomiting [Not Recovered/Not Resolved]

NARRATIVE: CASE EVENT DATE: 20250201
